FAERS Safety Report 23255548 (Version 2)
Quarter: 2023Q4

REPORT INFORMATION
  Report Type: Report from Study
  Country: US (occurrence: US)
  Receive Date: 20231203
  Receipt Date: 20231205
  Transmission Date: 20240110
  Serious: Yes (Death, Hospitalization)
  Sender: FDA-Public Use
  Company Number: US-BEH-2023165715

PATIENT
  Age: 43 Year
  Sex: Male
  Weight: 68.027 kg

DRUGS (1)
  1. HIZENTRA [Suspect]
     Active Substance: HUMAN IMMUNOGLOBULIN G
     Dosage: 28 GRAM
     Route: 065

REACTIONS (2)
  - Drug ineffective [Unknown]
  - Sepsis [Fatal]

NARRATIVE: CASE EVENT DATE: 20231101
